FAERS Safety Report 8915145 (Version 2)
Quarter: 2013Q1

REPORT INFORMATION
  Report Type: Report from Study
  Country: ES (occurrence: ES)
  Receive Date: 20121119
  Receipt Date: 20130103
  Transmission Date: 20140127
  Serious: Yes (Hospitalization)
  Sender: FDA-Public Use
  Company Number: ES-ROCHE-1156042

PATIENT
  Age: 45 Year
  Sex: Female
  Weight: 63 kg

DRUGS (5)
  1. BEVACIZUMAB [Suspect]
     Indication: METASTASES TO BONE
     Route: 042
     Dates: start: 20091130, end: 20101013
  2. ZOLEDRONIC ACID [Suspect]
     Indication: METASTASES TO BONE
     Route: 042
     Dates: start: 20060703, end: 20100826
  3. PACLITAXEL [Concomitant]
     Indication: BREAST CANCER
     Route: 042
     Dates: start: 20091030, end: 20101010
  4. GEMCITABINE [Concomitant]
     Indication: BREAST CANCER
     Route: 042
     Dates: start: 20091030, end: 20101013
  5. LETROZOLE [Concomitant]
     Indication: BREAST CANCER
     Route: 048
     Dates: start: 20060703, end: 20091101

REACTIONS (1)
  - Osteonecrosis of jaw [Recovered/Resolved]
